FAERS Safety Report 7701462-4 (Version None)
Quarter: 2011Q3

REPORT INFORMATION
  Report Type: 
  Country: None (occurrence: None)
  Receive Date: 20110819
  Receipt Date: 20110819
  Transmission Date: 20111222
  Serious: No
  Sender: FDA-Public Use
  Company Number: None

PATIENT
  Age: 55 Year
  Sex: Male
  Weight: 79.1 kg

DRUGS (1)
  1. PHENYTOIN [Suspect]
     Indication: CONVULSION
     Dosage: 200 MG BID  PO
     Route: 048
     Dates: start: 20110626, end: 20110627

REACTIONS (3)
  - PRURITUS [None]
  - URTICARIA [None]
  - RASH GENERALISED [None]
